FAERS Safety Report 11807362 (Version 1)
Quarter: 2015Q4

REPORT INFORMATION
  Report Type: Spontaneous
  Country: GB (occurrence: GB)
  Receive Date: 20151207
  Receipt Date: 20151207
  Transmission Date: 20160305
  Serious: Yes (Other)
  Sender: FDA-Public Use
  Company Number: GB-JNJFOC-20150807513

PATIENT
  Age: 79 Year
  Sex: Female
  Weight: 67 kg

DRUGS (4)
  1. XARELTO [Suspect]
     Active Substance: RIVAROXABAN
     Indication: ATRIAL FIBRILLATION
     Route: 048
     Dates: start: 201404, end: 201503
  2. FOLIC ACID. [Concomitant]
     Active Substance: FOLIC ACID
     Route: 065
     Dates: start: 20140214
  3. XARELTO [Suspect]
     Active Substance: RIVAROXABAN
     Indication: CEREBROVASCULAR ACCIDENT PROPHYLAXIS
     Route: 048
     Dates: start: 201404, end: 201503
  4. THIAMINE. [Concomitant]
     Active Substance: THIAMINE
     Route: 065
     Dates: start: 20140214

REACTIONS (5)
  - Cerebral haemorrhage [Recovered/Resolved]
  - Subdural haematoma [Recovered/Resolved]
  - Subarachnoid haemorrhage [Recovered/Resolved]
  - Syncope [Recovered/Resolved]
  - Skull fractured base [Recovered/Resolved]

NARRATIVE: CASE EVENT DATE: 20141129
